FAERS Safety Report 5284427-4 (Version None)
Quarter: 2007Q1

REPORT INFORMATION
  Report Type: 
  Country: None (occurrence: None)
  Receive Date: 20070328
  Receipt Date: 20070320
  Transmission Date: 20070707
  Serious: Yes (Hospitalization, Other)
  Sender: FDA-Public Use
  Company Number: GXKR2007DE02671

PATIENT
  Age: 66 Year
  Sex: Female

DRUGS (1)
  1. AMOCLAV (NGX) (AMOXICILLIN, CLAVULANATE) FILM-COATED TABLET [Suspect]
     Indication: OSTEITIS
     Dosage: ORAL
     Route: 048

REACTIONS (3)
  - AMNESIA [None]
  - AREFLEXIA [None]
  - LOSS OF CONSCIOUSNESS [None]
